FAERS Safety Report 5450161-0 (Version None)
Quarter: 2007Q3

REPORT INFORMATION
  Report Type: 
  Country: None (occurrence: None)
  Receive Date: 20070912
  Receipt Date: 20070907
  Transmission Date: 20080115
  Serious: Yes (Other)
  Sender: FDA-Public Use
  Company Number: B0486686A

PATIENT
  Age: 60 Year
  Sex: Female

DRUGS (3)
  1. AVANDIA [Suspect]
     Indication: DRUG USE FOR UNKNOWN INDICATION
     Route: 048
  2. METFORMIN HCL [Concomitant]
  3. SULPHONYLUREA [Concomitant]

REACTIONS (3)
  - BLOOD PRESSURE INCREASED [None]
  - JOINT SWELLING [None]
  - MACULAR OEDEMA [None]
